FAERS Safety Report 5593096-5 (Version None)
Quarter: 2008Q1

REPORT INFORMATION
  Report Type: 
  Country: None (occurrence: None)
  Receive Date: 20080114
  Receipt Date: 20080114
  Transmission Date: 20080703
  Serious: No
  Sender: FDA-Public Use
  Company Number: None

PATIENT
  Sex: Female

DRUGS (2)
  1. OXYCODONE HCL [Suspect]
     Indication: INTERVERTEBRAL DISC DEGENERATION
     Dosage: 1 Q6-8H PRN PAIN PO ?AROUND A MONTH?
     Route: 048
  2. OXYCODONE HCL [Suspect]
     Indication: OSTEOARTHRITIS
     Dosage: 1 Q6-8H PRN PAIN PO ?AROUND A MONTH?
     Route: 048

REACTIONS (1)
  - THERAPEUTIC RESPONSE UNEXPECTED WITH DRUG SUBSTITUTION [None]
